FAERS Safety Report 4971849-1 (Version None)
Quarter: 2006Q2

REPORT INFORMATION
  Report Type: 
  Country: None (occurrence: None)
  Receive Date: 20060413
  Receipt Date: 20060126
  Transmission Date: 20061013
  Serious: Yes (Death, Hospitalization)
  Sender: FDA-Public Use
  Company Number: GB-GLAXOSMITHKLINE-B0418823A

PATIENT
  Age: 67 Year
  Sex: Male

DRUGS (5)
  1. NIQUITIN CQ 2MG LOZENGE [Suspect]
     Indication: SMOKING CESSATION THERAPY
     Dosage: 2MG FIVE TIMES PER DAY
     Route: 002
     Dates: start: 20041201, end: 20051201
  2. NIQUITIN CQ 4MG LOZENGE [Suspect]
     Indication: SMOKING CESSATION THERAPY
     Dosage: 4MG UNKNOWN
     Route: 002
     Dates: start: 20041201
  3. SALBUTAMOL [Concomitant]
     Route: 055
  4. SEREVENT [Concomitant]
     Route: 055
  5. STEROIDS [Concomitant]

REACTIONS (3)
  - DEATH [None]
  - DEPENDENCE [None]
  - DYSPNOEA [None]
